FAERS Safety Report 7911439-1 (Version None)
Quarter: 2011Q4

REPORT INFORMATION
  Report Type: 
  Country: None (occurrence: None)
  Receive Date: 20111114
  Receipt Date: 20111110
  Transmission Date: 20120403
  Serious: Yes (Other)
  Sender: FDA-Public Use
  Company Number: IN-BAYER-2011-108658

PATIENT
  Age: 40 Year
  Sex: Male

DRUGS (2)
  1. ASPIRIN [Suspect]
     Indication: ANTIINFLAMMATORY THERAPY
     Dosage: 325 MG, 5 TABLETS/DAY
     Route: 048
  2. NIMESULIDE [Suspect]
     Indication: ANTIINFLAMMATORY THERAPY
     Dosage: 100 MG, 5 TABLETS/DAY
     Route: 048

REACTIONS (2)
  - PYLORIC STENOSIS [None]
  - VOMITING [None]
